FAERS Safety Report 17350784 (Version 2)
Quarter: 2020Q1

REPORT INFORMATION
  Report Type: Spontaneous
  Country: US (occurrence: US)
  Receive Date: 20200130
  Receipt Date: 20200217
  Transmission Date: 20200409
  Serious: No
  Sender: FDA-Public Use
  Company Number: US-AMGEN-USASP2020014553

PATIENT
  Age: 60 Year
  Sex: Female
  Weight: 83.91 kg

DRUGS (12)
  1. ENBREL [Suspect]
     Active Substance: ETANERCEPT
     Indication: UNDIFFERENTIATED CONNECTIVE TISSUE DISEASE
     Dosage: 50 MILLIGRAM, INJECTION ONCE A WEEK
     Route: 058
     Dates: start: 20191024, end: 20191120
  2. PREDNISONE. [Concomitant]
     Active Substance: PREDNISONE
     Indication: UNDIFFERENTIATED CONNECTIVE TISSUE DISEASE
     Dosage: 20 MILLIGRAM, 1X/DAY(DURATION OF TREATMENT: 2+ YEARS)
     Dates: start: 2017
  3. SINGULAIR [Concomitant]
     Active Substance: MONTELUKAST SODIUM
     Dosage: 10 MILLIGRAM, 1X/DAY
  4. ZYRTEC [Concomitant]
     Active Substance: CETIRIZINE HYDROCHLORIDE
     Dosage: 10 MILLIGRAM,1X/DAY
  5. ENBREL [Suspect]
     Active Substance: ETANERCEPT
     Dosage: 50 MILLIGRAM, INJECTION ONCE A WEEK
     Route: 065
  6. RISEDRONATE [Concomitant]
     Active Substance: RISEDRONATE SODIUM
     Dosage: 35 MILLIGRAM, WEEKLY
  7. PLAQUENIL [Concomitant]
     Active Substance: HYDROXYCHLOROQUINE SULFATE
     Indication: UNDIFFERENTIATED CONNECTIVE TISSUE DISEASE
     Dosage: 20 MILLIGRAM, 2X/DAY(DURATION OF TREATMENT: 9 YEARS)
     Dates: start: 2011
  8. METOPROLOL. [Concomitant]
     Active Substance: METOPROLOL
     Indication: ARRHYTHMIA SUPRAVENTRICULAR
     Dosage: 25 MILLIGRAM, 1X/DAY(DURATION OF TREATMENT: 3 MONTH )
     Dates: start: 201908
  9. CRESTOR [Concomitant]
     Active Substance: ROSUVASTATIN CALCIUM
     Dosage: 5 MILLIGRAM, 1X/DAY
  10. PEPCID [Concomitant]
     Active Substance: FAMOTIDINE
     Dosage: 20 MILLIGRAM, 2X/DAY
  11. CARAFATE [Concomitant]
     Active Substance: SUCRALFATE
     Dosage: 10 MILLILITER, 3X/DAY
  12. BABY ASPIRIN [Concomitant]
     Active Substance: ASPIRIN
     Dosage: 81 MILLIGRAM, 1X/DAY

REACTIONS (4)
  - Drug ineffective [Recovering/Resolving]
  - Off label use [Unknown]
  - Malaise [Recovered/Resolved]
  - Product use in unapproved indication [Unknown]

NARRATIVE: CASE EVENT DATE: 20191024
